FAERS Safety Report 10505191 (Version 2)
Quarter: 2014Q4

REPORT INFORMATION
  Report Type: Spontaneous
  Country: CN (occurrence: CN)
  Receive Date: 20141008
  Receipt Date: 20141021
  Transmission Date: 20150528
  Serious: Yes (Other)
  Sender: FDA-Public Use
  Company Number: CN-CUBIST PHARMACEUTICALS, INC.-2014CBST001386

PATIENT

DRUGS (13)
  1. CUBICIN [Suspect]
     Active Substance: DAPTOMYCIN
     Indication: GASTROINTESTINAL INFECTION
     Dosage: 8 MG/KG, QD
     Route: 048
     Dates: start: 20140311, end: 20140315
  2. POLYETHYLENE GLYCOL [Concomitant]
     Active Substance: POLYETHYLENE GLYCOLS
     Indication: ENTEROCOCCAL INFECTION
  3. LINEZOLID. [Concomitant]
     Active Substance: LINEZOLID
     Indication: ENTEROCOCCAL INFECTION
  4. LACTOBACILLUS RHAMNOSUS [Concomitant]
     Active Substance: LACTOBACILLUS RHAMNOSUS
     Indication: ENTEROCOCCAL INFECTION
  5. CUBICIN [Suspect]
     Active Substance: DAPTOMYCIN
     Indication: ENTEROCOCCAL INFECTION
     Dosage: 250 MG, Q24H
     Route: 042
     Dates: start: 20140301, end: 20140317
  6. LACTOBACILLUS RHAMNOSUS [Concomitant]
     Active Substance: LACTOBACILLUS RHAMNOSUS
     Indication: GASTROINTESTINAL INFECTION
     Dosage: 80 MG, QD
     Route: 048
  7. POLYETHYLENE GLYCOL [Concomitant]
     Active Substance: POLYETHYLENE GLYCOLS
     Indication: GASTROINTESTINAL INFECTION
     Dosage: 2 LITER, OVER 6 HOURS
     Route: 048
  8. METRONIDAZOLE. [Concomitant]
     Active Substance: METRONIDAZOLE
     Indication: PERITONITIS BACTERIAL
     Dosage: 500 MG, Q8H
     Route: 042
     Dates: start: 20140301, end: 20140313
  9. CUBICIN [Suspect]
     Active Substance: DAPTOMYCIN
     Indication: PERITONITIS BACTERIAL
     Dosage: 250 MG, Q12H
     Route: 042
  10. CUBICIN [Suspect]
     Active Substance: DAPTOMYCIN
     Indication: OFF LABEL USE
  11. LINEZOLID. [Concomitant]
     Active Substance: LINEZOLID
     Indication: GASTROINTESTINAL INFECTION
     Dosage: 600 MG, Q12H
     Route: 048
  12. PIPERACILLIN TAZOBACTAM PA [Concomitant]
     Active Substance: PIPERACILLIN SODIUM\TAZOBACTAM SODIUM
     Indication: PERITONITIS BACTERIAL
     Dosage: 4.5 G, Q12H
     Route: 042
     Dates: start: 20140301, end: 20140313
  13. PIPERACILLIN TAZOBACTAM PA [Concomitant]
     Active Substance: PIPERACILLIN SODIUM\TAZOBACTAM SODIUM
     Dosage: 4.5 G, Q12H
     Route: 042

REACTIONS (2)
  - Enterococcal infection [Unknown]
  - Off label use [Unknown]
